FAERS Safety Report 11125073 (Version 1)
Quarter: 2015Q2

REPORT INFORMATION
  Report Type: Spontaneous
  Country: FR (occurrence: FR)
  Receive Date: 20150520
  Receipt Date: 20150520
  Transmission Date: 20150821
  Serious: Yes (Hospitalization)
  Sender: FDA-Public Use
  Company Number: FR-DSJP-DSE-2015-115557

PATIENT

DRUGS (5)
  1. OLMESARTAN MEDOXOMIL. [Suspect]
     Active Substance: OLMESARTAN MEDOXOMIL
     Indication: PRODUCT USED FOR UNKNOWN INDICATION
     Dosage: UNK
     Route: 048
     Dates: start: 201103
  2. FIVASA                             /00747601/ [Concomitant]
     Dosage: 3200 MG, QD
     Route: 048
  3. ROWASA [Concomitant]
     Active Substance: MESALAMINE
     Dosage: 1 DF, QD
  4. FIVASA                             /00747601/ [Concomitant]
     Indication: COLITIS ULCERATIVE
     Dosage: 800 MG, BID
     Route: 048
  5. ROWASA [Concomitant]
     Active Substance: MESALAMINE
     Indication: COLITIS ULCERATIVE
     Dosage: 1 DF, ONCE EVERY 1 WK

REACTIONS (2)
  - Colitis ulcerative [Not Recovered/Not Resolved]
  - Condition aggravated [Not Recovered/Not Resolved]

NARRATIVE: CASE EVENT DATE: 2014
